FAERS Safety Report 20070921 (Version 1)
Quarter: 2021Q4

REPORT INFORMATION
  Report Type: Spontaneous
  Country: CH (occurrence: CH)
  Receive Date: 20211115
  Receipt Date: 20211115
  Transmission Date: 20220303
  Serious: Yes (Other)
  Sender: FDA-Public Use
  Company Number: None

PATIENT
  Age: 53 Year
  Sex: Male

DRUGS (24)
  1. BEVACIZUMAB [Suspect]
     Active Substance: BEVACIZUMAB
     Indication: Metastasis
     Dosage: 3CYCLES ; CYCLICAL
     Route: 065
     Dates: start: 20210611, end: 20210804
  2. BEVACIZUMAB [Suspect]
     Active Substance: BEVACIZUMAB
     Indication: Metastasis
     Dosage: IN TOTAL, 425 MG
     Route: 065
     Dates: start: 20210902, end: 20210902
  3. BEVACIZUMAB [Suspect]
     Active Substance: BEVACIZUMAB
     Indication: Metastasis
     Dosage: IN TOTAL, 425 MG
     Route: 065
     Dates: start: 20210916, end: 20210916
  4. BEVACIZUMAB [Suspect]
     Active Substance: BEVACIZUMAB
     Indication: Metastasis
     Dosage: IN TOTAL, 425 MG
     Route: 065
     Dates: start: 20210930, end: 20210930
  5. FLUOROURACIL [Suspect]
     Active Substance: FLUOROURACIL
     Indication: Metastasis
     Dosage: 4 CYCLES ; CYCLICAL
     Route: 065
     Dates: start: 202001
  6. FLUOROURACIL [Suspect]
     Active Substance: FLUOROURACIL
     Indication: Metastasis
     Dosage: IN TOTAL, 4800 MG
     Route: 065
     Dates: start: 20210902, end: 20210902
  7. FLUOROURACIL [Suspect]
     Active Substance: FLUOROURACIL
     Indication: Metastasis
     Dosage: IN TOTAL, 4800 MG
     Route: 065
     Dates: start: 20210916, end: 20210916
  8. FLUOROURACIL [Suspect]
     Active Substance: FLUOROURACIL
     Indication: Metastasis
     Dosage: IN TOTAL, 4800 MG
     Route: 065
     Dates: start: 20210930, end: 20210930
  9. IRINOTECAN [Suspect]
     Active Substance: IRINOTECAN
     Indication: Rectosigmoid cancer metastatic
     Dosage: 4 CYCLES ; CYCLICAL
     Route: 065
     Dates: start: 202001, end: 202006
  10. IRINOTECAN [Suspect]
     Active Substance: IRINOTECAN
     Indication: Rectosigmoid cancer metastatic
     Dosage: IN TOTAL, 360 MG
     Route: 065
     Dates: start: 20210902, end: 20210902
  11. IRINOTECAN [Suspect]
     Active Substance: IRINOTECAN
     Indication: Rectosigmoid cancer metastatic
     Dosage: IN TOTAL, 360 MG
     Route: 065
     Dates: start: 20210916, end: 20210916
  12. IRINOTECAN [Suspect]
     Active Substance: IRINOTECAN
     Indication: Rectosigmoid cancer metastatic
     Dosage: IN TOTAL, 360 MG
     Route: 065
     Dates: start: 20210930, end: 20210930
  13. LEUCOVORIN [Concomitant]
     Active Substance: LEUCOVORIN
     Dates: start: 202001, end: 202006
  14. LEUCOVORIN [Concomitant]
     Active Substance: LEUCOVORIN
     Dosage: 30 MG
     Dates: start: 20210902, end: 20210902
  15. LEUCOVORIN [Concomitant]
     Active Substance: LEUCOVORIN
     Dosage: 30 MG
     Dates: start: 20210916, end: 20210916
  16. LEUCOVORIN [Concomitant]
     Active Substance: LEUCOVORIN
     Dosage: 30 MG
     Dates: start: 20210930, end: 20210930
  17. ALLOPURINOL [Concomitant]
     Active Substance: ALLOPURINOL
     Dates: end: 20211008
  18. EMPAGLIFLOZIN\METFORMIN HYDROCHLORIDE [Concomitant]
     Active Substance: EMPAGLIFLOZIN\METFORMIN HYDROCHLORIDE
  19. EMPAGLIFLOZIN [Concomitant]
     Active Substance: EMPAGLIFLOZIN
     Dates: end: 20211004
  20. ESOMEPRAZOLE [Concomitant]
     Active Substance: ESOMEPRAZOLE
  21. NEBIVOLOL [Concomitant]
     Active Substance: NEBIVOLOL
  22. DAFALGAN [Concomitant]
     Active Substance: ACETAMINOPHEN
  23. SODIUM POLYSTYRENE SULFONATE [Concomitant]
     Active Substance: SODIUM POLYSTYRENE SULFONATE
     Dates: end: 20211004
  24. PRADIF T [Concomitant]
     Active Substance: TAMSULOSIN HYDROCHLORIDE
     Dates: end: 20211004

REACTIONS (2)
  - Pancytopenia [Recovering/Resolving]
  - Agranulocytosis [Recovered/Resolved]

NARRATIVE: CASE EVENT DATE: 20211005
